FAERS Safety Report 7105885-6 (Version None)
Quarter: 2010Q4

REPORT INFORMATION
  Report Type: 
  Country: None (occurrence: None)
  Receive Date: 20101116
  Receipt Date: 20101112
  Transmission Date: 20110411
  Serious: Yes (Hospitalization)
  Sender: FDA-Public Use
  Company Number: A0892234A

PATIENT
  Sex: Female

DRUGS (5)
  1. LAMICTAL [Suspect]
     Indication: COMPLEX PARTIAL SEIZURES
     Route: 048
     Dates: start: 20060101
  2. LAMOTRIGINE [Suspect]
     Indication: COMPLEX PARTIAL SEIZURES
     Route: 048
  3. VIMPAT [Suspect]
     Indication: COMPLEX PARTIAL SEIZURES
     Route: 065
  4. TEGRETOL [Suspect]
     Indication: COMPLEX PARTIAL SEIZURES
     Route: 065
  5. ANTI-EPILEPTIC DRUGS (UNSPECIFIED) [Suspect]
     Indication: COMPLEX PARTIAL SEIZURES
     Route: 065

REACTIONS (4)
  - CONVULSION [None]
  - DRUG INEFFECTIVE [None]
  - GRAND MAL CONVULSION [None]
  - PERSONALITY CHANGE [None]
